FAERS Safety Report 8037476-7 (Version None)
Quarter: 2012Q1

REPORT INFORMATION
  Report Type: 
  Country: None (occurrence: None)
  Receive Date: 20120111
  Receipt Date: 20120109
  Transmission Date: 20120608
  Serious: Yes (Other)
  Sender: FDA-Public Use
  Company Number: US-PFIZER INC-2011307443

PATIENT
  Sex: Male
  Weight: 113 kg

DRUGS (2)
  1. ESTRING [Suspect]
     Indication: ATROPHIC VULVOVAGINITIS
     Dosage: UNK
     Route: 050
     Dates: start: 20111101, end: 20111201
  2. TAMSULOSIN HYDROCHLORIDE [Concomitant]
     Indication: DIABETES MELLITUS
     Dosage: UNK

REACTIONS (7)
  - BURNING SENSATION [None]
  - PENILE INFECTION [None]
  - DYSURIA [None]
  - PENILE ERYTHEMA [None]
  - PENILE EXFOLIATION [None]
  - PENIS DISORDER [None]
  - GENITAL RASH [None]
